FAERS Safety Report 24630954 (Version 3)
Quarter: 2024Q4

REPORT INFORMATION
  Report Type: Spontaneous
  Country: DE (occurrence: DE)
  Receive Date: 20241118
  Receipt Date: 20241211
  Transmission Date: 20250114
  Serious: Yes (Hospitalization, Other)
  Sender: NOVARTIS
  Company Number: None

PATIENT
  Age: 60 Year
  Sex: Female

DRUGS (2)
  1. SIPONIMOD [Suspect]
     Active Substance: SIPONIMOD
     Indication: Multiple sclerosis
     Dosage: 2 MG
     Route: 048
     Dates: start: 20240201, end: 20240905
  2. PREDNISOLONE [Concomitant]
     Active Substance: PREDNISOLONE
     Indication: Rheumatoid arthritis
     Dosage: UNK
     Route: 065

REACTIONS (11)
  - Delirium [Recovering/Resolving]
  - Blindness cortical [Recovering/Resolving]
  - Disturbance in attention [Recovering/Resolving]
  - Hallucination, visual [Recovering/Resolving]
  - Hyperkinesia [Recovering/Resolving]
  - Headache [Recovering/Resolving]
  - Psychotic behaviour [Recovering/Resolving]
  - Aggression [Recovering/Resolving]
  - Status epilepticus [Recovering/Resolving]
  - Hemiparesis [Recovering/Resolving]
  - Lymphopenia [Recovering/Resolving]

NARRATIVE: CASE EVENT DATE: 20240901
